FAERS Safety Report 18120025 (Version 1)
Quarter: 2020Q3

REPORT INFORMATION
  Report Type: Spontaneous
  Country: US (occurrence: US)
  Receive Date: 20200806
  Receipt Date: 20200806
  Transmission Date: 20201103
  Serious: Yes (Hospitalization, Other)
  Sender: FDA-Public Use
  Company Number: US-PFIZER INC-2020296847

PATIENT
  Age: 69 Year
  Sex: Female

DRUGS (1)
  1. ATORVASTATIN CALCIUM. [Suspect]
     Active Substance: ATORVASTATIN CALCIUM
     Indication: DYSLIPIDAEMIA
     Dosage: 40 MG

REACTIONS (13)
  - Dysphagia [Unknown]
  - Tachycardia [Unknown]
  - Inflammatory marker increased [Unknown]
  - Blood creatine phosphokinase increased [Recovering/Resolving]
  - Pyrexia [Unknown]
  - Cough [Unknown]
  - COVID-19 [Unknown]
  - Meningioma [Unknown]
  - Myalgia [Unknown]
  - Balance disorder [Unknown]
  - Asthenia [Unknown]
  - Rhabdomyolysis [Unknown]
  - Muscular weakness [Recovering/Resolving]
